FAERS Safety Report 17781063 (Version 1)
Quarter: 2020Q2

REPORT INFORMATION
  Report Type: Spontaneous
  Country: GB (occurrence: GB)
  Receive Date: 20200513
  Receipt Date: 20200513
  Transmission Date: 20200714
  Serious: Yes (Disabling)
  Sender: FDA-Public Use
  Company Number: GB-MYLANLABS-2020M1046060

PATIENT
  Age: 28 Year
  Sex: Female
  Weight: 70 kg

DRUGS (3)
  1. CATACROM [Concomitant]
     Dosage: 1-2 DROPS 4 TIMES/DAY.
     Dates: start: 20200409
  2. FEXOFENADINE [Suspect]
     Active Substance: FEXOFENADINE HYDROCHLORIDE
     Indication: PRODUCT USED FOR UNKNOWN INDICATION
     Dosage: 120 MILLIGRAM, QD
     Dates: start: 20200409
  3. AVAMYS [Concomitant]
     Active Substance: FLUTICASONE FUROATE
     Dosage: 1 DOSAGE FORM, QD
     Dates: start: 20200409

REACTIONS (1)
  - Angina pectoris [Recovering/Resolving]

NARRATIVE: CASE EVENT DATE: 20200414
